FAERS Safety Report 17994602 (Version 1)
Quarter: 2020Q3

REPORT INFORMATION
  Report Type: Spontaneous
  Country: US (occurrence: US)
  Receive Date: 20200708
  Receipt Date: 20200708
  Transmission Date: 20201103
  Serious: No
  Sender: FDA-Public Use
  Company Number: None

PATIENT

DRUGS (1)
  1. VANCOMYCIN [Suspect]
     Active Substance: VANCOMYCIN
     Indication: OSTEOMYELITIS
     Dates: start: 20190201, end: 20190209

REACTIONS (3)
  - Drug trough level [None]
  - Blood creatinine increased [None]
  - Drug level increased [None]

NARRATIVE: CASE EVENT DATE: 20190201
